FAERS Safety Report 6900834-5 (Version None)
Quarter: 2010Q3

REPORT INFORMATION
  Report Type: 
  Country: None (occurrence: None)
  Receive Date: 20100803
  Receipt Date: 20100722
  Transmission Date: 20110219
  Serious: Yes (Death, Other)
  Sender: FDA-Public Use
  Company Number: JP-PFIZER INC-2010077366

PATIENT
  Age: 79 Year
  Sex: Male
  Weight: 50 kg

DRUGS (8)
  1. LINEZOLID [Suspect]
     Indication: PNEUMONIA
     Dosage: 600 MG, 2X/DAY
     Route: 042
     Dates: start: 20080214, end: 20080222
  2. LINEZOLID [Suspect]
     Dosage: 600 MG, 1X/DAY
     Route: 042
     Dates: start: 20080223
  3. AMBISOME [Suspect]
     Dosage: UNK
     Route: 042
     Dates: start: 20080216, end: 20080226
  4. MEROPENEM TRIHYDRATE [Suspect]
     Route: 042
  5. PAZUCROSS [Suspect]
     Dosage: UNK
     Route: 042
     Dates: start: 20080215, end: 20080226
  6. ITRIZOLE [Concomitant]
     Dosage: UNK
     Route: 042
     Dates: end: 20080215
  7. NEOPHAGEN [Concomitant]
     Dosage: UNK
     Route: 042
     Dates: start: 20080215, end: 20080218
  8. ASPARA [Concomitant]
     Dosage: UNK
     Route: 042
     Dates: start: 20080217, end: 20080226

REACTIONS (6)
  - BONE MARROW FAILURE [None]
  - HAEMOGLOBIN DECREASED [None]
  - LIP AND/OR ORAL CAVITY CANCER [None]
  - OBSTRUCTIVE AIRWAYS DISORDER [None]
  - PLATELET COUNT DECREASED [None]
  - SUPERINFECTION [None]
